FAERS Safety Report 13611711 (Version 6)
Quarter: 2020Q2

REPORT INFORMATION
  Report Type: Spontaneous
  Country: KR (occurrence: KR)
  Receive Date: 20170605
  Receipt Date: 20200430
  Transmission Date: 20200713
  Serious: Yes (Death, Other)
  Sender: FDA-Public Use
  Company Number: KR-AMGEN-KORSP2017080127

PATIENT
  Age: 19 Month
  Sex: Male

DRUGS (9)
  1. BLINCYTO [Suspect]
     Active Substance: BLINATUMOMAB
     Dosage: 5 MICROGRAM/SQ. METER, QD, DAY 7 TO DAY 27
     Route: 042
  2. CYTARABINE. [Concomitant]
     Active Substance: CYTARABINE
     Dosage: 3000 MILLIGRAM/SQ. METER, D0 TO D4
  3. CLOFARABINE. [Concomitant]
     Active Substance: CLOFARABINE
     Dosage: 40 MILLIGRAM/SQ. METER, D0 TO D4
  4. CYTARABINE. [Concomitant]
     Active Substance: CYTARABINE
     Indication: PRECURSOR B-LYMPHOBLASTIC LYMPHOMA REFRACTORY
     Dosage: 50 MILLIGRAM, Q2WK (ON DAY 0, D 14 AND D 28)
     Route: 037
  5. FILGRASTIM [Suspect]
     Active Substance: FILGRASTIM
     Indication: NEUTROPHIL COUNT ABNORMAL
     Dosage: UNK UNK, QD
     Route: 065
  6. ETOPOSIDE. [Concomitant]
     Active Substance: ETOPOSIDE
     Dosage: 150 MILLIGRAM/SQ. METER
  7. CYTARABINE. [Concomitant]
     Active Substance: CYTARABINE
     Indication: LEUKAEMIC INFILTRATION EXTRAMEDULLARY
     Dosage: 50 MICROGRAM
     Route: 037
  8. CYCLOPHOSPHAMIDE. [Concomitant]
     Active Substance: CYCLOPHOSPHAMIDE
     Dosage: 40 MILLIGRAM/SQ. METER, D0 TO D4
  9. BLINCYTO [Suspect]
     Active Substance: BLINATUMOMAB
     Indication: B PRECURSOR TYPE ACUTE LEUKAEMIA
     Dosage: 5 MICROGRAM/SQ. METER, QD, DAY 0 TO DAY 6
     Route: 042

REACTIONS (7)
  - Febrile neutropenia [Fatal]
  - Tonic convulsion [Recovered/Resolved]
  - Cytokine release syndrome [Recovered/Resolved]
  - Central nervous system leukaemia [Unknown]
  - B precursor type acute leukaemia [Unknown]
  - Acute graft versus host disease [Unknown]
  - Leukaemic infiltration extramedullary [Unknown]
